FAERS Safety Report 15120502 (Version 1)
Quarter: 2018Q3

REPORT INFORMATION
  Report Type: Spontaneous
  Country: CN (occurrence: CN)
  Receive Date: 20180709
  Receipt Date: 20180709
  Transmission Date: 20181010
  Serious: Yes (Other)
  Sender: FDA-Public Use
  Company Number: CN-FRESENIUS KABI-FK201807529

PATIENT
  Age: 16 Day
  Sex: Male

DRUGS (2)
  1. INTRALIPID [Suspect]
     Active Substance: EGG PHOSPHOLIPIDS\GLYCERIN\SOYBEAN OIL
     Indication: PREMATURE BABY
     Dosage: 3.5ML/QD
     Dates: start: 20180413, end: 20180520
  2. COMPOUND AMINO ACID INJECTION [Suspect]
     Active Substance: AMINO ACIDS
     Indication: PREMATURE BABY
     Dosage: 30ML/BID
     Dates: start: 20180413, end: 20180520

REACTIONS (1)
  - Neonatal cholestasis [Recovering/Resolving]

NARRATIVE: CASE EVENT DATE: 20180429
